FAERS Safety Report 21266928 (Version 13)
Quarter: 2025Q3

REPORT INFORMATION
  Report Type: Spontaneous
  Country: EU (occurrence: EU)
  Receive Date: 20220829
  Receipt Date: 20250725
  Transmission Date: 20251020
  Serious: Yes (Hospitalization, Other)
  Sender: MYLAN
  Company Number: EU-PFIZER INC-PV202200044756

PATIENT
  Age: 54 Year
  Sex: Female

DRUGS (14)
  1. ALPRAZOLAM [Suspect]
     Active Substance: ALPRAZOLAM
     Indication: Insomnia
     Dosage: 0.25 MG IN THE EVENING, GRADUALLY INCREASING THE DOSE TO 1 MG TWICE DAILY
  2. ALPRAZOLAM [Suspect]
     Active Substance: ALPRAZOLAM
     Indication: Stress
     Dosage: 1 MILLIGRAM, BID (GRADUALLY INCREASING 1 MG TWICE A DAY, 3X/DAY)
  3. ALPRAZOLAM [Suspect]
     Active Substance: ALPRAZOLAM
     Indication: Anxiety
     Dosage: 1 MILLIGRAM, TID (1 MG, TO 3X PER DAY)
  4. ALPRAZOLAM [Suspect]
     Active Substance: ALPRAZOLAM
  5. ZOLPIDEM [Suspect]
     Active Substance: ZOLPIDEM TARTRATE
     Indication: Insomnia
  6. ZOLPIDEM [Suspect]
     Active Substance: ZOLPIDEM TARTRATE
  7. ZOLPIDEM [Suspect]
     Active Substance: ZOLPIDEM TARTRATE
  8. ESTAZOLAM [Suspect]
     Active Substance: ESTAZOLAM
     Indication: Insomnia
  9. ESTAZOLAM [Suspect]
     Active Substance: ESTAZOLAM
  10. ESTAZOLAM [Suspect]
     Active Substance: ESTAZOLAM
  11. METHOTREXATE [Suspect]
     Active Substance: METHOTREXATE
     Indication: Rheumatoid arthritis
     Dosage: 10 MILLIGRAM, QW
  12. ACEMETACIN [Suspect]
     Active Substance: ACEMETACIN
     Indication: Rheumatoid arthritis
     Dosage: 90 MILLIGRAM, QD
  13. ACEMETACIN [Suspect]
     Active Substance: ACEMETACIN
  14. METHYLPREDNISOLONE [Suspect]
     Active Substance: METHYLPREDNISOLONE
     Indication: Rheumatoid arthritis
     Dosage: 4 MILLIGRAM, QD

REACTIONS (13)
  - Drug dependence [Unknown]
  - Intentional product misuse [Unknown]
  - Impaired quality of life [Unknown]
  - Loss of personal independence in daily activities [Unknown]
  - Drug abuse [Unknown]
  - Intentional product use issue [Unknown]
  - Arthropathy [Recovering/Resolving]
  - Drug ineffective [Unknown]
  - Circumstance or information capable of leading to medication error [Unknown]
  - Drug intolerance [Unknown]
  - Overdose [Unknown]
  - Drug effect less than expected [Unknown]
  - Treatment failure [Unknown]

NARRATIVE: CASE EVENT DATE: 20160101
